FAERS Safety Report 18734364 (Version 1)
Quarter: 2021Q1

REPORT INFORMATION
  Report Type: Spontaneous
  Country: US (occurrence: US)
  Receive Date: 20210112
  Receipt Date: 20210112
  Transmission Date: 20210419
  Serious: Yes (Other)
  Sender: FDA-Public Use
  Company Number: None

PATIENT
  Age: 65 Year
  Sex: Female
  Weight: 115.9 kg

DRUGS (3)
  1. BARICITINIB. [Suspect]
     Active Substance: BARICITINIB
     Indication: COVID-19
     Route: 048
     Dates: start: 20210102, end: 20210103
  2. BARICITINIB. [Suspect]
     Active Substance: BARICITINIB
     Indication: COVID-19
     Route: 048
     Dates: start: 20210101, end: 20210102
  3. REMDESIVIR. [Concomitant]
     Active Substance: REMDESIVIR
     Dates: start: 20201230, end: 20210103

REACTIONS (8)
  - Cerebral infarction [None]
  - Renal impairment [None]
  - Blood creatinine increased [None]
  - Therapy cessation [None]
  - Encephalopathy [None]
  - Haematoma [None]
  - Liver function test increased [None]
  - Hypoxia [None]

NARRATIVE: CASE EVENT DATE: 20210103
